FAERS Safety Report 7335523-9 (Version None)
Quarter: 2011Q1

REPORT INFORMATION
  Report Type: 
  Country: None (occurrence: None)
  Receive Date: 20110301
  Receipt Date: 20110301
  Transmission Date: 20110831
  Serious: Yes (Life-Threatening, Hospitalization)
  Sender: FDA-Public Use
  Company Number: None

PATIENT
  Age: 29 Year
  Sex: Male
  Weight: 58.9676 kg

DRUGS (1)
  1. CIPRO [Suspect]

REACTIONS (16)
  - TACHYCARDIA [None]
  - HALLUCINATION [None]
  - DEHYDRATION [None]
  - DEPRESSION [None]
  - PARAESTHESIA [None]
  - PALPITATIONS [None]
  - BACK PAIN [None]
  - BLOOD POTASSIUM DECREASED [None]
  - ABDOMINAL PAIN [None]
  - INSOMNIA [None]
  - SINUSITIS [None]
  - DIZZINESS [None]
  - DIARRHOEA [None]
  - VISION BLURRED [None]
  - MALAISE [None]
  - TREMOR [None]
